FAERS Safety Report 5728437-9 (Version None)
Quarter: 2008Q2

REPORT INFORMATION
  Report Type: 
  Country: None (occurrence: None)
  Receive Date: 20080506
  Receipt Date: 20080506
  Transmission Date: 20081010
  Serious: Yes (Other)
  Sender: FDA-Public Use
  Company Number: None

PATIENT
  Age: 22 Month
  Sex: Male
  Weight: 28 kg

DRUGS (1)
  1. HEPARIN LOCK-FLUSH [Suspect]
     Indication: CENTRAL VENOUS CATHETERISATION
     Dosage: 5ML = 500 UNITS DAILY IV
     Route: 042

REACTIONS (4)
  - NAUSEA [None]
  - OTITIS MEDIA [None]
  - PHARMACEUTICAL PRODUCT COMPLAINT [None]
  - VOMITING [None]
